FAERS Safety Report 9732514 (Version 1)
Quarter: 2013Q4

REPORT INFORMATION
  Report Type: Spontaneous
  Country: US (occurrence: US)
  Receive Date: 20131205
  Receipt Date: 20131205
  Transmission Date: 20140711
  Serious: Yes (Hospitalization)
  Sender: FDA-Public Use
  Company Number: US-BAYER-2013-147478

PATIENT
  Age: 35 Year
  Sex: Female
  Weight: 61.22 kg

DRUGS (5)
  1. YAZ [Suspect]
  2. YASMIN [Suspect]
  3. OCELLA [Suspect]
     Dosage: UNK
  4. VALACICLOVIR [Concomitant]
     Indication: GENITAL HERPES
     Dosage: 500 MG, PRN
     Dates: start: 20111024
  5. AMOXICILLIN [Concomitant]

REACTIONS (1)
  - Pulmonary embolism [None]
